FAERS Safety Report 4689614-1 (Version None)
Quarter: 2005Q2

REPORT INFORMATION
  Report Type: 
  Country: None (occurrence: None)
  Receive Date: 20050608
  Receipt Date: 20050131
  Transmission Date: 20051028
  Serious: No
  Sender: FDA-Public Use
  Company Number: 2005-BP-01478BP

PATIENT
  Age: 76 Year
  Sex: Female

DRUGS (3)
  1. SPIRIVA [Suspect]
     Indication: CHRONIC OBSTRUCTIVE PULMONARY DISEASE
     Dosage: 18 MCG (18 MCG), IH
     Route: 055
     Dates: start: 20050125
  2. ETODOLAC [Concomitant]
  3. NEW TEARS [Concomitant]

REACTIONS (3)
  - PHOTOPSIA [None]
  - VISUAL DISTURBANCE [None]
  - VITREOUS FLOATERS [None]
